FAERS Safety Report 17291435 (Version 1)
Quarter: 2020Q1

REPORT INFORMATION
  Report Type: Spontaneous
  Country: US (occurrence: US)
  Receive Date: 20200117
  Receipt Date: 20200117
  Transmission Date: 20200409
  Serious: Yes (Hospitalization)
  Sender: FDA-Public Use
  Company Number: None

PATIENT
  Age: 26 Year
  Sex: Female

DRUGS (15)
  1. CREON 20 CAP [Concomitant]
  2. PREVACID CAP 15 MG DR [Concomitant]
  3. PULMOZYME [Suspect]
     Active Substance: DORNASE ALFA
     Indication: CYSTIC FIBROSIS
     Dosage: ?          OTHER ROUTE:INHALATION?
     Dates: start: 20170113
  4. SALINE SOL [Concomitant]
  5. TOBI NEB 300/5ML [Concomitant]
  6. MIRALAX POW 3350 NF [Concomitant]
  7. SYVOX SOL 2MG/ML [Concomitant]
  8. ALBUTEROL AER 90MCG [Concomitant]
  9. AQUADEKS CAP [Concomitant]
  10. MAGNESIUM TAB 250 MG [Concomitant]
  11. NOVOLOG INJ 100/ML [Concomitant]
  12. AZITHROMYCIN TAB 250MG [Concomitant]
  13. NASONEX SPR 50 MCG/AC [Concomitant]
  14. LANTUS INJ 100/ML [Concomitant]
  15. VITAMIN K TAB 100MCG [Concomitant]

REACTIONS (1)
  - Treatment noncompliance [None]

NARRATIVE: CASE EVENT DATE: 20200115
